FAERS Safety Report 9314676 (Version 1)
Quarter: 2013Q2

REPORT INFORMATION
  Report Type: Spontaneous
  Country: US (occurrence: US)
  Receive Date: 20130529
  Receipt Date: 20130529
  Transmission Date: 20140414
  Serious: Yes (Hospitalization, Other)
  Sender: FDA-Public Use
  Company Number: US201002003426

PATIENT
  Age: 40 Year
  Sex: Male
  Weight: 131.07 kg

DRUGS (12)
  1. BYETTA PEN DISPOSABLE [Suspect]
     Route: 065
     Dates: start: 200801, end: 200903
  2. BYETTA PEN DISPOSABLE [Suspect]
     Route: 058
     Dates: start: 20081007, end: 20090325
  3. EXENATIDE UNK STRENGTH PEN, DISPOSABLE DEVICE [Concomitant]
  4. AVANDAMET [Concomitant]
     Indication: DIABETES MELLITUS
     Dates: start: 20081007, end: 20090325
  5. TRICOR [Concomitant]
     Indication: HYPERLIPIDAEMIA
     Dates: start: 20050713
  6. TYLENOL [Concomitant]
     Indication: HEADACHE
     Dates: start: 20000101
  7. BENAZEPRIL HCL [Concomitant]
  8. HYDROCHLOROTHIAZIDE [Concomitant]
  9. DILTIAZEM HCL [Concomitant]
  10. HYDROMORPHONE [Concomitant]
     Indication: PAIN
     Route: 042
     Dates: start: 20090325, end: 20090401
  11. ZOFRAN [Concomitant]
     Indication: RETCHING
     Dates: start: 20090325
  12. REGLAN [Concomitant]
     Indication: RETCHING
     Dates: start: 20090325

REACTIONS (2)
  - Pancreatitis necrotising [Not Recovered/Not Resolved]
  - Pancreatitis chronic [Not Recovered/Not Resolved]
